FAERS Safety Report 23735504 (Version 1)
Quarter: 2024Q2

REPORT INFORMATION
  Report Type: Spontaneous
  Country: CN (occurrence: CN)
  Receive Date: 20240412
  Receipt Date: 20240412
  Transmission Date: 20240716
  Serious: Yes (Other)
  Sender: FDA-Public Use
  Company Number: CN-Jiangsu Hansoh Pharmaceutical Co., Ltd-2155484

PATIENT
  Age: 67 Year
  Sex: Male

DRUGS (1)
  1. PEMETREXED [Suspect]
     Active Substance: PEMETREXED
     Indication: Lung neoplasm malignant
     Route: 040
     Dates: start: 20240328, end: 20240328

REACTIONS (3)
  - Erythema [Recovering/Resolving]
  - Blood pressure decreased [Recovering/Resolving]
  - Eye oedema [Recovering/Resolving]

NARRATIVE: CASE EVENT DATE: 20240328
